FAERS Safety Report 17495446 (Version 1)
Quarter: 2020Q1

REPORT INFORMATION
  Report Type: Spontaneous
  Country: US (occurrence: US)
  Receive Date: 20200303
  Receipt Date: 20200303
  Transmission Date: 20200409
  Serious: No
  Sender: FDA-Public Use
  Company Number: US-INCYTE CORPORATION-2020IN001743

PATIENT

DRUGS (1)
  1. JAKAFI [Suspect]
     Active Substance: RUXOLITINIB
     Dosage: 20 MILLIGRAM, BID
     Route: 048
     Dates: start: 201908

REACTIONS (8)
  - Stomatitis [Unknown]
  - Nausea [Unknown]
  - Bone pain [Unknown]
  - Dizziness [Unknown]
  - Dental caries [Unknown]
  - Headache [Unknown]
  - Blood cholesterol increased [Unknown]
  - Weight increased [Unknown]
